FAERS Safety Report 5532205-0 (Version None)
Quarter: 2007Q4

REPORT INFORMATION
  Report Type: 
  Country: None (occurrence: None)
  Receive Date: 20071128
  Receipt Date: 20071115
  Transmission Date: 20080405
  Serious: Yes (Hospitalization)
  Sender: FDA-Public Use
  Company Number: CIP07002411

PATIENT
  Age: 89 Year
  Sex: Female

DRUGS (7)
  1. RISEDRONATE SODIUM [Suspect]
     Indication: OSTEOPOROSIS
     Dosage: 2.5 MG DAILY, ORAL
     Route: 048
     Dates: start: 20070201, end: 20070312
  2. DILTIAZEM HYDROCHLORIDE [Concomitant]
  3. MERISLON /00141802/ (BETAHISTINE HYDROCHLORIDE) [Concomitant]
  4. TAGAMET [Concomitant]
  5. THIATON (TIQUIZIUM BROMIDE) [Concomitant]
  6. ASPARA-CA (ASPARTATE CALCIUM) [Concomitant]
  7. SALMOTONIN (CALCITONIN, SALMON) [Concomitant]

REACTIONS (2)
  - ENTERITIS INFECTIOUS [None]
  - MELAENA [None]
